FAERS Safety Report 12711493 (Version 1)
Quarter: 2016Q3

REPORT INFORMATION
  Report Type: Spontaneous
  Country: CN (occurrence: CN)
  Receive Date: 20160902
  Receipt Date: 20160902
  Transmission Date: 20161109
  Serious: Yes (Hospitalization, Other)
  Sender: FDA-Public Use
  Company Number: CN-GILEAD-2016-0230751

PATIENT
  Age: 60 Year
  Sex: Female

DRUGS (1)
  1. HEPSERA [Suspect]
     Active Substance: ADEFOVIR DIPIVOXIL
     Indication: CHRONIC HEPATITIS B
     Dosage: 10 MG, QD
     Route: 048

REACTIONS (31)
  - Hypokinesia [Recovering/Resolving]
  - Arthralgia [Recovering/Resolving]
  - Condition aggravated [Unknown]
  - Rib fracture [Recovering/Resolving]
  - Body height decreased [Unknown]
  - Renal tubular acidosis [Recovering/Resolving]
  - Urine analysis abnormal [Recovering/Resolving]
  - Weight decreased [Unknown]
  - Blood alkaline phosphatase increased [Unknown]
  - Osteomalacia [Recovering/Resolving]
  - Bone pain [Recovering/Resolving]
  - Proteinuria [Recovering/Resolving]
  - Musculoskeletal discomfort [Recovering/Resolving]
  - Albumin urine present [Unknown]
  - Blood uric acid decreased [Unknown]
  - Abdominal distension [Recovering/Resolving]
  - Acidosis [Recovering/Resolving]
  - Nephropathy [Recovering/Resolving]
  - Pain [Recovering/Resolving]
  - Intervertebral disc protrusion [Unknown]
  - Back pain [Recovering/Resolving]
  - Bone metabolism disorder [Recovering/Resolving]
  - Alpha 1 microglobulin increased [Unknown]
  - Hypophosphataemia [Recovering/Resolving]
  - Musculoskeletal chest pain [Recovering/Resolving]
  - Nephritic syndrome [Unknown]
  - Blood phosphorus decreased [Recovered/Resolved]
  - Gait disturbance [Recovering/Resolving]
  - Chest pain [Recovering/Resolving]
  - Osteoporosis [Recovering/Resolving]
  - Multiple fractures [Recovering/Resolving]
